FAERS Safety Report 10349096 (Version 3)
Quarter: 2014Q3

REPORT INFORMATION
  Report Type: Report from Study
  Country: GB (occurrence: GB)
  Receive Date: 20140729
  Receipt Date: 20140820
  Transmission Date: 20150326
  Serious: Yes (Hospitalization)
  Sender: FDA-Public Use
  Company Number: GB-BRISTOL-MYERS SQUIBB COMPANY-20379731

PATIENT
  Age: 66 Year
  Sex: Female

DRUGS (4)
  1. MORPHINE [Concomitant]
     Active Substance: MORPHINE
  2. ABATACEPT SUBQ INJECTION 125MG/ML [Suspect]
     Active Substance: ABATACEPT
     Indication: RHEUMATOID ARTHRITIS
     Route: 058
     Dates: start: 201312, end: 2014
  3. PARACETAMOL [Concomitant]
     Active Substance: ACETAMINOPHEN
  4. LEFLUNOMIDE. [Concomitant]
     Active Substance: LEFLUNOMIDE

REACTIONS (5)
  - Ulcer [Unknown]
  - Dry mouth [Unknown]
  - Dry eye [Unknown]
  - Cellulitis [Unknown]
  - Nasal dryness [Unknown]

NARRATIVE: CASE EVENT DATE: 2014
